FAERS Safety Report 13667742 (Version 1)
Quarter: 2017Q2

REPORT INFORMATION
  Report Type: Spontaneous
  Country: DE (occurrence: DE)
  Receive Date: 20170620
  Receipt Date: 20170620
  Transmission Date: 20170830
  Serious: Yes (Disabling, Other)
  Sender: FDA-Public Use
  Company Number: DE-ACCORD-052789

PATIENT
  Age: 46 Year
  Sex: Female

DRUGS (18)
  1. QUETIAPINE. [Suspect]
     Active Substance: QUETIAPINE
     Route: 048
     Dates: start: 20140522, end: 20140928
  2. LEVOMEPROMAZINE [Suspect]
     Active Substance: LEVOMEPROMAZINE
     Route: 048
     Dates: start: 20140806, end: 20140925
  3. METOPROLOL. [Concomitant]
     Active Substance: METOPROLOL
     Route: 048
     Dates: start: 20160120
  4. RAMIPRIL. [Concomitant]
     Active Substance: RAMIPRIL
     Route: 048
     Dates: start: 20131219
  5. METOPROLOL. [Concomitant]
     Active Substance: METOPROLOL
     Route: 048
     Dates: start: 20141016, end: 20160119
  6. QUETIAPINE. [Suspect]
     Active Substance: QUETIAPINE
     Indication: PRODUCT USED FOR UNKNOWN INDICATION
     Dosage: 15-MAY-2010 TO 10-JAN-2013: 500MG/DAY?11-JAN-2013 TO 30-JUN-2013: 600MG/DAY
     Route: 048
  7. SERTRALINE [Suspect]
     Active Substance: SERTRALINE HYDROCHLORIDE
     Indication: PRODUCT USED FOR UNKNOWN INDICATION
     Route: 048
     Dates: start: 20140610, end: 20140904
  8. PIPAMPERONE [Suspect]
     Active Substance: PIPAMPERONE
     Route: 048
     Dates: start: 20140809, end: 20140904
  9. LEVOMEPROMAZINE [Suspect]
     Active Substance: LEVOMEPROMAZINE
     Indication: PRODUCT USED FOR UNKNOWN INDICATION
     Dosage: 03-MAY-2014 TO 05-AUG-2014: 100MG/DAY
     Route: 048
  10. AMISULPRIDE [Suspect]
     Active Substance: AMISULPRIDE
     Route: 048
     Dates: start: 20140613, end: 20140820
  11. METOPROLOL. [Concomitant]
     Active Substance: METOPROLOL
     Dosage: 05-SEP-2013 TO 15-OCT-2014: 47.5MG/DAY?16-OCT-2014 TO 19-JAN-2016: 95MG/DAY?20-JAN-2016: 47.5MG/DA
     Route: 048
  12. QUETIAPINE. [Suspect]
     Active Substance: QUETIAPINE
     Route: 048
     Dates: start: 20130111, end: 20130630
  13. PIPAMPERONE [Suspect]
     Active Substance: PIPAMPERONE
     Route: 048
     Dates: start: 20140905, end: 20141015
  14. RAMIPRIL. [Concomitant]
     Active Substance: RAMIPRIL
     Dosage: 20-DEC-2012 TO 18-DEC-2013: 5MG/DAY?19-DEC-2013: 10MG/DAY
     Route: 048
  15. AMISULPRIDE [Suspect]
     Active Substance: AMISULPRIDE
     Indication: PRODUCT USED FOR UNKNOWN INDICATION
     Dosage: 04-MAY-2014 TO 12-JUN-2014: 800MG/DAY?13-JUN-2014 TO 20-AUG-2014: 600MG/DAY
     Route: 048
  16. PIPAMPERONE [Suspect]
     Active Substance: PIPAMPERONE
     Indication: PRODUCT USED FOR UNKNOWN INDICATION
     Dosage: 28-APR-2014 TO 08-AUG-2014: 80MG/DAY
     Route: 048
     Dates: start: 20140428
  17. AMISULPRIDE [Suspect]
     Active Substance: AMISULPRIDE
     Route: 048
     Dates: start: 20140821, end: 20150514
  18. QUETIAPINE. [Suspect]
     Active Substance: QUETIAPINE
     Route: 048
     Dates: start: 20130701, end: 20140521

REACTIONS (1)
  - Metabolic syndrome [Unknown]

NARRATIVE: CASE EVENT DATE: 20140701
